FAERS Safety Report 19930069 (Version 4)
Quarter: 2021Q4

REPORT INFORMATION
  Report Type: Spontaneous
  Country: US (occurrence: US)
  Receive Date: 20211007
  Receipt Date: 20211121
  Transmission Date: 20220304
  Serious: Yes (Other)
  Sender: FDA-Public Use
  Company Number: US-009507513-2110USA000574

PATIENT
  Sex: Female
  Weight: 63.946 kg

DRUGS (14)
  1. VERQUVO [Suspect]
     Active Substance: VERICIGUAT
     Indication: Cardiac failure congestive
     Dosage: 2.5 MG QD, EVERY DAY
     Route: 048
     Dates: start: 20210810
  2. VERQUVO [Suspect]
     Active Substance: VERICIGUAT
     Dosage: 5 MG, QD, EVERY DAY
     Route: 048
  3. VERQUVO [Suspect]
     Active Substance: VERICIGUAT
     Dosage: 2.5 MG QD, EVERY DAY
     Route: 048
  4. METOLAZONE [Concomitant]
     Active Substance: METOLAZONE
  5. FUROSEMIDE [Concomitant]
     Active Substance: FUROSEMIDE
  6. LEVOTHYROXINE [Concomitant]
     Active Substance: LEVOTHYROXINE
  7. METOPROLOL [Concomitant]
     Active Substance: METOPROLOL
  8. WARFARIN [Concomitant]
     Active Substance: WARFARIN
  9. GABAPENTIN [Concomitant]
     Active Substance: GABAPENTIN
  10. POTASSIUM [Concomitant]
     Active Substance: POTASSIUM
  11. MELATONIN [Concomitant]
     Active Substance: MELATONIN
  12. VITAMIN D3 [Concomitant]
     Active Substance: CHOLECALCIFEROL
  13. ASPIRIN [Concomitant]
     Active Substance: ASPIRIN
  14. CRESTOR [Concomitant]
     Active Substance: ROSUVASTATIN CALCIUM

REACTIONS (5)
  - Fatigue [Recovered/Resolved]
  - Feeling abnormal [Recovered/Resolved]
  - Asthenia [Recovered/Resolved]
  - Dizziness [Recovered/Resolved]
  - Product prescribing error [Unknown]
